FAERS Safety Report 24958084 (Version 1)
Quarter: 2025Q1

REPORT INFORMATION
  Report Type: Spontaneous
  Country: US (occurrence: US)
  Receive Date: 20250212
  Receipt Date: 20250212
  Transmission Date: 20250408
  Serious: No
  Sender: Kenvue
  Company Number: US-KENVUE-20250106858

PATIENT
  Sex: Female

DRUGS (3)
  1. TYLENOL [Suspect]
     Active Substance: ACETAMINOPHEN
     Indication: Pain in extremity
     Route: 065
  2. topicals [Concomitant]
     Indication: Pain in extremity
     Route: 065
  3. Patches [Concomitant]
     Indication: Pain in extremity
     Route: 065

REACTIONS (1)
  - Drug ineffective [Unknown]
